FAERS Safety Report 13871644 (Version 1)
Quarter: 2017Q3

REPORT INFORMATION
  Report Type: Spontaneous
  Country: US (occurrence: US)
  Receive Date: 20170816
  Receipt Date: 20170816
  Transmission Date: 20171127
  Serious: Yes (Death)
  Sender: FDA-Public Use
  Company Number: US-COLLEGIUM PHARMACEUTICAL, INC.-2017CGM00071

PATIENT
  Age: 59 Year
  Sex: Female
  Weight: 86.62 kg

DRUGS (1)
  1. XTAMPZA ER [Suspect]
     Active Substance: OXYCODONE
     Dosage: 27 MG, ONCE
     Dates: start: 20170801, end: 20170801

REACTIONS (1)
  - Death [Fatal]

NARRATIVE: CASE EVENT DATE: 20170801
